FAERS Safety Report 11780088 (Version 1)
Quarter: 2015Q4

REPORT INFORMATION
  Report Type: Spontaneous
  Country: US (occurrence: US)
  Receive Date: 20151126
  Receipt Date: 20151126
  Transmission Date: 20160304
  Serious: No
  Sender: FDA-Public Use
  Company Number: US-JNJFOC-20151002488

PATIENT
  Age: 8 Month
  Sex: Male
  Weight: 9.53 kg

DRUGS (2)
  1. INFANTS TYLENOL [Suspect]
     Active Substance: ACETAMINOPHEN
     Indication: PYREXIA
     Dosage: 5 ML ONCE.
     Route: 048
     Dates: start: 20151002
  2. INFANTS TYLENOL [Suspect]
     Active Substance: ACETAMINOPHEN
     Indication: TEETHING
     Dosage: 5 ML ONCE.
     Route: 048
     Dates: start: 20151002

REACTIONS (1)
  - Incorrect dose administered [Unknown]
